FAERS Safety Report 8003904-6 (Version None)
Quarter: 2011Q4

REPORT INFORMATION
  Report Type: 
  Country: None (occurrence: None)
  Receive Date: 20111222
  Receipt Date: 20111213
  Transmission Date: 20120403
  Serious: Yes (Other)
  Sender: FDA-Public Use
  Company Number: US-ASTRAZENECA-2008UW15084

PATIENT
  Age: 63 Year
  Sex: Female
  Weight: 77.1 kg

DRUGS (6)
  1. CELEXA [Concomitant]
  2. XANAX [Concomitant]
  3. MOM [Concomitant]
  4. SEROQUEL [Suspect]
     Indication: BIPOLAR DISORDER
     Route: 048
     Dates: start: 20080630, end: 20080726
  5. LITHIUM CARBONATE [Concomitant]
  6. HORMONES [Concomitant]

REACTIONS (6)
  - GLOSSODYNIA [None]
  - MENTAL DISORDER [None]
  - CONFUSIONAL STATE [None]
  - DEREALISATION [None]
  - LOSS OF CONSCIOUSNESS [None]
  - WRONG TECHNIQUE IN DRUG USAGE PROCESS [None]
